FAERS Safety Report 4716751-5 (Version None)
Quarter: 2005Q3

REPORT INFORMATION
  Report Type: 
  Country: None (occurrence: None)
  Receive Date: 20050714
  Receipt Date: 20050711
  Transmission Date: 20060218
  Serious: Yes (Death, Life-Threatening, Other)
  Sender: FDA-Public Use
  Company Number: USA-2005-0020168

PATIENT
  Age: 17 Year
  Sex: Male

DRUGS (1)
  1. OXYCONTIN [Suspect]

REACTIONS (7)
  - ACCIDENTAL OVERDOSE [None]
  - DRUG ABUSER [None]
  - DRUG TOXICITY [None]
  - PNEUMONIA [None]
  - RESPIRATORY DISTRESS [None]
  - SELF-MEDICATION [None]
  - SNORING [None]
